FAERS Safety Report 7677183-3 (Version None)
Quarter: 2011Q3

REPORT INFORMATION
  Report Type: 
  Country: None (occurrence: None)
  Receive Date: 20110811
  Receipt Date: 20110728
  Transmission Date: 20111222
  Serious: Yes (Hospitalization)
  Sender: FDA-Public Use
  Company Number: US-ELI_LILLY_AND_COMPANY-US201103000659

PATIENT
  Sex: Female

DRUGS (22)
  1. FENTANYL [Concomitant]
     Indication: BACK PAIN
     Dosage: 50 UG, UNKNOWN
  2. SINGULAIR [Concomitant]
     Indication: ASTHMA
     Dosage: UNK, OTHER
  3. OXYCODONE HCL [Concomitant]
     Indication: BREAKTHROUGH PAIN
     Dosage: 30 MG, OTHER
  4. ZOFRAN [Concomitant]
     Dosage: UNK, OTHER
  5. MORPHINE [Concomitant]
  6. NEURONTIN [Concomitant]
     Indication: NERVE INJURY
  7. VYTORIN [Concomitant]
     Indication: BLOOD CHOLESTEROL
     Dosage: 40 MG, QD
  8. DICLOFENAC SODIUM [Concomitant]
     Indication: ARTHRITIS
     Dosage: 100 MG, OTHER
  9. OXYBUTIN [Concomitant]
     Dosage: 5 MG, QD
  10. CYMBALTA [Suspect]
     Indication: DEPRESSION
     Dosage: 120 MG, QD
     Dates: start: 20110501
  11. ACTOS [Concomitant]
     Indication: DIABETES MELLITUS
  12. FLEXERIL [Concomitant]
     Indication: MUSCLE SPASMS
  13. FORTEO [Suspect]
     Indication: OSTEOPOROSIS
     Dosage: 20 UG, QD
     Dates: end: 20110705
  14. PROTONIX [Concomitant]
     Indication: ABDOMINAL DISCOMFORT
     Dosage: 40 MG, QD
  15. PHENERGAN HCL [Concomitant]
     Indication: VOMITING
  16. FORTEO [Suspect]
     Dosage: 20 UG, QD
     Dates: start: 20110708
  17. COREG [Concomitant]
     Dosage: 125 MG, OTHER
  18. CALCIUM CARBONATE [Concomitant]
     Dosage: UNK, QD
  19. VITAMIN D [Concomitant]
  20. MECLIZINE [Concomitant]
     Indication: DIZZINESS
  21. XANAX [Concomitant]
     Indication: ANXIETY
     Dosage: 1 MG, PRN
  22. LISINOPRIL [Concomitant]
     Dosage: 40 MG, QD

REACTIONS (14)
  - MALAISE [None]
  - ASTHENIA [None]
  - PYREXIA [None]
  - VERTIGO [None]
  - VOMITING [None]
  - HOSPITALISATION [None]
  - DIZZINESS [None]
  - INFLUENZA [None]
  - MOVEMENT DISORDER [None]
  - DIARRHOEA [None]
  - PAIN [None]
  - CONFUSIONAL STATE [None]
  - INJECTION SITE PAIN [None]
  - MUSCLE SPASMS [None]
